FAERS Safety Report 6663457-1 (Version None)
Quarter: 2010Q2

REPORT INFORMATION
  Report Type: 
  Country: None (occurrence: None)
  Receive Date: 20100401
  Receipt Date: 20100323
  Transmission Date: 20101027
  Serious: Yes (Other)
  Sender: FDA-Public Use
  Company Number: BR-PFIZER INC-2010037059

PATIENT
  Age: 11 Year
  Sex: Male

DRUGS (1)
  1. GENOTROPIN [Suspect]
     Indication: BODY HEIGHT BELOW NORMAL
     Dosage: 2 MG, 6X/WEEK
     Route: 058
     Dates: start: 20100111, end: 20100323

REACTIONS (6)
  - APPLICATION SITE VESICLES [None]
  - ARTHRALGIA [None]
  - BLISTER [None]
  - FLUID RETENTION [None]
  - HYPERSENSITIVITY [None]
  - RASH MACULAR [None]
